FAERS Safety Report 20024772 (Version 2)
Quarter: 2021Q4

REPORT INFORMATION
  Report Type: Spontaneous
  Country: US (occurrence: None)
  Receive Date: 20211102
  Receipt Date: 20211116
  Transmission Date: 20220303
  Serious: No
  Sender: FDA-Public Use
  Company Number: 2021A763883

PATIENT
  Sex: Male
  Weight: 99.8 kg

DRUGS (1)
  1. BYDUREON BCISE [Suspect]
     Active Substance: EXENATIDE
     Indication: Weight decreased
     Route: 058
     Dates: start: 202106

REACTIONS (6)
  - Injection site pain [Unknown]
  - Weight decreased [Unknown]
  - Device use issue [Unknown]
  - Incorrect dose administered by device [Unknown]
  - Off label use [Unknown]
  - Device leakage [Unknown]
